FAERS Safety Report 6518689-X (Version None)
Quarter: 2009Q4

REPORT INFORMATION
  Report Type: 
  Country: None (occurrence: None)
  Receive Date: 20091228
  Receipt Date: 20091221
  Transmission Date: 20100525
  Serious: Yes (Congenital Anomaly)
  Sender: FDA-Public Use
  Company Number: NL-ROCHE-676130

PATIENT
  Sex: Female

DRUGS (5)
  1. TAMIFLU [Suspect]
     Route: 048
     Dates: start: 20090614, end: 20090621
  2. ALBUTEROL [Concomitant]
     Route: 055
     Dates: start: 20090907
  3. DOXYCYCLINE [Concomitant]
     Route: 048
     Dates: start: 20090827, end: 20090902
  4. OXOZEPAM [Concomitant]
     Dosage: FREQUENCY: PRN 0,5 TABLET
     Route: 048
     Dates: start: 20090901
  5. BECLOMETHASONE DIPROPIONATE [Concomitant]
     Route: 055
     Dates: start: 20090924

REACTIONS (1)
  - CONGENITAL ANOMALY [None]
